FAERS Safety Report 18996721 (Version 1)
Quarter: 2021Q1

REPORT INFORMATION
  Report Type: Spontaneous
  Country: US (occurrence: US)
  Receive Date: 20210310
  Receipt Date: 20210310
  Transmission Date: 20210420
  Serious: Yes (Life-Threatening, Disabling, Other)
  Sender: FDA-Public Use
  Company Number: None

PATIENT
  Age: 35 Year
  Sex: Female
  Weight: 125.19 kg

DRUGS (3)
  1. NEXPLANON [Suspect]
     Active Substance: ETONOGESTREL
     Dates: start: 20140731, end: 20210305
  2. TOPIRAMATE, [Suspect]
     Active Substance: TOPIRAMATE
  3. DESIPRAMINE [Suspect]
     Active Substance: DESIPRAMINE

REACTIONS (25)
  - Vertigo [None]
  - Loss of personal independence in daily activities [None]
  - Anxiety [None]
  - Libido disorder [None]
  - Nausea [None]
  - Constipation [None]
  - Seizure [None]
  - Depression [None]
  - Anger [None]
  - Influenza like illness [None]
  - Amenorrhoea [None]
  - Sleep disorder [None]
  - Deafness [None]
  - Pain in extremity [None]
  - Peripheral swelling [None]
  - Diarrhoea [None]
  - Urinary incontinence [None]
  - Migraine [None]
  - Emotional disorder [None]
  - Neuralgia [None]
  - Transient ischaemic attack [None]
  - Rash [None]
  - Weight increased [None]
  - Asthenia [None]
  - Dyspareunia [None]

NARRATIVE: CASE EVENT DATE: 20210101
